FAERS Safety Report 10355141 (Version 1)
Quarter: 2014Q3

REPORT INFORMATION
  Report Type: Spontaneous
  Country: JP (occurrence: JP)
  Receive Date: 20140731
  Receipt Date: 20140731
  Transmission Date: 20150326
  Serious: Yes (Death, Other)
  Sender: FDA-Public Use
  Company Number: PHHY2013JP159331

PATIENT
  Age: 70 Year
  Sex: Female

DRUGS (2)
  1. EXJADE [Suspect]
     Active Substance: DEFERASIROX
     Dosage: 500 MG,UNK
     Dates: start: 20101004, end: 20101124
  2. EXJADE [Suspect]
     Active Substance: DEFERASIROX
     Indication: APLASTIC ANAEMIA
     Dosage: 1000 MG, DAILY
     Dates: start: 200810, end: 20101124

REACTIONS (4)
  - Disease progression [Unknown]
  - Infection [Fatal]
  - Aplastic anaemia [Unknown]
  - Blood creatinine increased [Unknown]

NARRATIVE: CASE EVENT DATE: 20101004
